FAERS Safety Report 9602745 (Version 1)
Quarter: 2013Q4

REPORT INFORMATION
  Report Type: Spontaneous
  Country: GB (occurrence: None)
  Receive Date: 20131003
  Receipt Date: 20131003
  Transmission Date: 20140711
  Serious: Yes (Life-Threatening, Hospitalization)
  Sender: FDA-Public Use
  Company Number: 1509551

PATIENT
  Age: 60 Year
  Sex: Female
  Weight: 102 kg

DRUGS (13)
  1. (METHOTREXATE) [Suspect]
     Indication: RHEUMATOID ARTHRITIS
     Dosage: 1 WEEK
     Route: 058
     Dates: end: 20111104
  2. TOCILIZUMAB [Suspect]
     Indication: RHEUMATOID ARTHRITIS
     Dosage: 1 WEEK
     Route: 042
     Dates: start: 20110304, end: 20121104
  3. (LEFLUNOMIDE) [Concomitant]
  4. (PREDNISOLONE) [Concomitant]
  5. (FOLIC ACID) [Concomitant]
  6. (TRAMADOL) [Concomitant]
  7. (LANSOPRAZOLE) (LANSOPRAZOLE) [Concomitant]
  8. (ALENDRONIC ACID) [Concomitant]
  9. CITALOPRAM [Concomitant]
  10. (CERTIRIZINE) [Concomitant]
  11. (PERINOPRIL) [Concomitant]
  12. (ETODOLAC) [Concomitant]
  13. (SULPHASALAZINE) [Concomitant]

REACTIONS (3)
  - Alveolitis allergic [None]
  - Abdominal pain [None]
  - Vomiting [None]
